FAERS Safety Report 25526934 (Version 3)
Quarter: 2025Q3

REPORT INFORMATION
  Report Type: Report from Study
  Country: US (occurrence: US)
  Receive Date: 20250707
  Receipt Date: 20250721
  Transmission Date: 20251020
  Serious: Yes (Other)
  Sender: ABBVIE
  Company Number: US-ABBVIE-6198872

PATIENT
  Age: 56 Year
  Sex: Female

DRUGS (5)
  1. SKYRIZI [Suspect]
     Active Substance: RISANKIZUMAB-RZAA
     Indication: Crohn^s disease
     Route: 058
     Dates: start: 20241101
  2. SKYRIZI [Suspect]
     Active Substance: RISANKIZUMAB-RZAA
     Route: 058
     Dates: start: 20241004
  3. SKYRIZI [Suspect]
     Active Substance: RISANKIZUMAB-RZAA
     Route: 058
     Dates: start: 20240909
  4. SKYRIZI [Suspect]
     Active Substance: RISANKIZUMAB-RZAA
     Route: 058
     Dates: start: 20241121
  5. KETAMINE [Suspect]
     Active Substance: KETAMINE
     Indication: Product used for unknown indication
     Route: 065

REACTIONS (15)
  - Colectomy [Unknown]
  - Vomiting [Recovered/Resolved]
  - Coma [Unknown]
  - Vomiting [Recovered/Resolved]
  - Vomiting [Not Recovered/Not Resolved]
  - Hallucination [Unknown]
  - Memory impairment [Unknown]
  - Neuropathy peripheral [Unknown]
  - Therapeutic product effect incomplete [Not Recovered/Not Resolved]
  - Abdominal pain upper [Unknown]
  - Anxiety [Unknown]
  - Post procedural oedema [Unknown]
  - Depression [Unknown]
  - Scar [Unknown]
  - Intestinal dilatation [Unknown]

NARRATIVE: CASE EVENT DATE: 20241101
